FAERS Safety Report 22283781 (Version 1)
Quarter: 2023Q2

REPORT INFORMATION
  Report Type: Spontaneous
  Country: US (occurrence: US)
  Receive Date: 20230504
  Receipt Date: 20230504
  Transmission Date: 20230721
  Serious: No
  Sender: FDA-Public Use
  Company Number: US-SA-SAC20230503001312

PATIENT
  Sex: Female

DRUGS (1)
  1. FABRAZYME [Suspect]
     Active Substance: AGALSIDASE BETA
     Indication: Fabry^s disease
     Dosage: 60 MG, Q10D
     Route: 042
     Dates: start: 202001

REACTIONS (3)
  - Ankle fracture [Unknown]
  - Ligament sprain [Unknown]
  - Inappropriate schedule of product administration [Unknown]
